FAERS Safety Report 8384540-9 (Version None)
Quarter: 2012Q2

REPORT INFORMATION
  Report Type: 
  Country: None (occurrence: None)
  Receive Date: 20120524
  Receipt Date: 20120515
  Transmission Date: 20120825
  Serious: Yes (Other)
  Sender: FDA-Public Use
  Company Number: FR-JNJFOC-20120405420

PATIENT
  Sex: Female
  Weight: 69 kg

DRUGS (2)
  1. XARELTO [Suspect]
     Indication: ORTHOPEDIC PROCEDURE
     Route: 048
     Dates: start: 20110225, end: 20110228
  2. XARELTO [Suspect]
     Indication: LIGAMENT SPRAIN
     Route: 048
     Dates: start: 20110225, end: 20110228

REACTIONS (5)
  - HYPERSENSITIVITY [None]
  - OFF LABEL USE [None]
  - OROPHARYNGEAL PAIN [None]
  - DYSGEUSIA [None]
  - PHARYNGEAL LESION [None]
